FAERS Safety Report 6183792-3 (Version None)
Quarter: 2009Q2

REPORT INFORMATION
  Report Type: 
  Country: None (occurrence: None)
  Receive Date: 20090506
  Receipt Date: 20090506
  Transmission Date: 20091009
  Serious: Yes (Hospitalization)
  Sender: FDA-Public Use
  Company Number: None

PATIENT
  Sex: Female
  Weight: 93.18 kg

DRUGS (2)
  1. CISPLATIN [Suspect]
     Dosage: 60 MG
  2. ERBITUX [Suspect]
     Dosage: 500 MG

REACTIONS (4)
  - ANAEMIA [None]
  - DEHYDRATION [None]
  - NAUSEA [None]
  - VOMITING [None]
